FAERS Safety Report 7600561-5 (Version None)
Quarter: 2011Q3

REPORT INFORMATION
  Report Type: 
  Country: None (occurrence: None)
  Receive Date: 20110706
  Receipt Date: 20110706
  Transmission Date: 20111222
  Serious: Yes (Hospitalization, Disabling)
  Sender: FDA-Public Use
  Company Number: None

PATIENT
  Sex: Female
  Weight: 56.246 kg

DRUGS (6)
  1. ACTONEL [Suspect]
     Indication: OSTEOPENIA
     Dosage: 150 MGM ONCE A MONTH ORAL
     Route: 048
     Dates: start: 20081101
  2. ACTONEL [Suspect]
     Indication: OSTEOPENIA
     Dosage: 150 MGM ONCE A MONTH ORAL
     Route: 048
     Dates: start: 20090201
  3. ACTONEL [Suspect]
     Indication: OSTEOPENIA
     Dosage: 150 MGM ONCE A MONTH ORAL
     Route: 048
     Dates: start: 20090101
  4. ACTONEL [Suspect]
     Indication: OSTEOPENIA
     Dosage: 150 MGM ONCE A MONTH ORAL
     Route: 048
     Dates: start: 20090301
  5. ACTONEL [Suspect]
     Indication: OSTEOPENIA
     Dosage: 150 MGM ONCE A MONTH ORAL
     Route: 048
     Dates: start: 20081001
  6. ACTONEL [Suspect]
     Indication: OSTEOPENIA
     Dosage: 150 MGM ONCE A MONTH ORAL
     Route: 048
     Dates: start: 20081201

REACTIONS (8)
  - BALANCE DISORDER [None]
  - GAIT DISTURBANCE [None]
  - NEUROPATHY PERIPHERAL [None]
  - OSTEONECROSIS OF JAW [None]
  - ECONOMIC PROBLEM [None]
  - FALL [None]
  - MUSCULAR WEAKNESS [None]
  - IMPAIRED DRIVING ABILITY [None]
